FAERS Safety Report 4887756-9 (Version None)
Quarter: 2005Q4

REPORT INFORMATION
  Report Type: 
  Country: None (occurrence: None)
  Receive Date: 20051221
  Receipt Date: 20050715
  Transmission Date: 20060501
  Serious: No
  Sender: FDA-Public Use
  Company Number: US-YAMANOUCHI-YPA20050376

PATIENT
  Age: 64 Year
  Sex: Female

DRUGS (8)
  1. VESICARE [Suspect]
     Indication: HYPERTONIC BLADDER
     Dosage: 5 MG PO
     Route: 048
     Dates: start: 20050702, end: 20050704
  2. TOPROL-XL [Concomitant]
  3. HCT ^CT-ARZNEIMITTEL^ [Concomitant]
  4. PREMARIN [Concomitant]
  5. ASPIRIN [Concomitant]
  6. ASCORBIC ACID [Concomitant]
  7. MAGNESIUM [Concomitant]
  8. MULTIVITAMIN ^LAPPE^ [Concomitant]

REACTIONS (4)
  - CONSTIPATION [None]
  - DRY MOUTH [None]
  - EYE IRRITATION [None]
  - VISION BLURRED [None]
